FAERS Safety Report 5050042-0 (Version None)
Quarter: 2006Q2

REPORT INFORMATION
  Report Type: 
  Country: None (occurrence: None)
  Receive Date: 20060601
  Receipt Date: 20060214
  Transmission Date: 20061013
  Serious: No
  Sender: FDA-Public Use
  Company Number: US200602003058

PATIENT
  Age: 85 Year
  Sex: Female

DRUGS (8)
  1. CYMBALTA [Suspect]
     Indication: DEPRESSION
     Dosage: SEE IMAGE
     Dates: start: 20050101
  2. CYMBALTA [Suspect]
     Indication: DEPRESSION
     Dosage: SEE IMAGE
     Dates: start: 20050201
  3. CYMBALTA [Suspect]
     Indication: DEPRESSION
     Dosage: SEE IMAGE
     Dates: start: 20060101
  4. CYMBALTA [Suspect]
     Indication: DEPRESSION
     Dosage: SEE IMAGE
     Dates: start: 20060101
  5. FORTEO [Suspect]
     Indication: OSTEOPOROSIS
     Dates: start: 20050701, end: 20051101
  6. FORTEO [Concomitant]
  7. LEXAPRO /USA/ (ESCITALOPRAM) [Concomitant]
  8. ZOLOFT [Concomitant]

REACTIONS (5)
  - ENERGY INCREASED [None]
  - INSOMNIA [None]
  - NIGHT SWEATS [None]
  - NIGHTMARE [None]
  - THERAPEUTIC RESPONSE DECREASED [None]
